FAERS Safety Report 16062905 (Version 1)
Quarter: 2019Q1

REPORT INFORMATION
  Report Type: Spontaneous
  Country: US (occurrence: US)
  Receive Date: 20190312
  Receipt Date: 20190312
  Transmission Date: 20190418
  Serious: No
  Sender: FDA-Public Use
  Company Number: US-PFIZER INC-2019098128

PATIENT
  Age: 40 Year
  Sex: Female
  Weight: 59 kg

DRUGS (1)
  1. PREMARIN [Suspect]
     Active Substance: ESTROGENS, CONJUGATED
     Dosage: UNKNOWN DOSAGE REGIMEN

REACTIONS (7)
  - Fatigue [Not Recovered/Not Resolved]
  - Heart rate increased [Not Recovered/Not Resolved]
  - Emotional disorder [Not Recovered/Not Resolved]
  - Feeling abnormal [Unknown]
  - Stress [Unknown]
  - Thinking abnormal [Unknown]
  - Headache [Unknown]
